FAERS Safety Report 20670886 (Version 1)
Quarter: 2022Q2

REPORT INFORMATION
  Report Type: Report from Study
  Country: EG (occurrence: EG)
  Receive Date: 20220404
  Receipt Date: 20220404
  Transmission Date: 20220721
  Serious: Yes (Hospitalization, Other)
  Sender: FDA-Public Use
  Company Number: EG-002147023-NVSC2022EG003539

PATIENT

DRUGS (10)
  1. RUXOLITINIB [Suspect]
     Active Substance: RUXOLITINIB
     Indication: Myelofibrosis
     Dosage: 1 DOSAGE FORM, BID
     Route: 065
     Dates: start: 20220104
  2. RUXOLITINIB [Suspect]
     Active Substance: RUXOLITINIB
     Dosage: 2 DOSAGE FORM, BID
     Route: 065
     Dates: start: 20220306, end: 20220320
  3. JADENU [Concomitant]
     Active Substance: DEFERASIROX
     Indication: Iron overload
     Dosage: THREE TABLETS ON EMPTY STOMACH IN THE MORNING
     Route: 065
  4. EPREX [Concomitant]
     Active Substance: ERYTHROPOIETIN
     Indication: Vitamin supplementation
     Dosage: UNK
     Route: 058
  5. FOLIC ACID [Concomitant]
     Active Substance: FOLIC ACID
     Indication: Vitamin supplementation
     Dosage: UNK
     Route: 048
  6. DELTAVIT B12 [Concomitant]
     Indication: Vitamin supplementation
     Dosage: UNK
     Route: 060
  7. CAL MAG [CALCIUM CARBONATE;MAGNESIUM] [Concomitant]
     Indication: Vitamin supplementation
     Dosage: UNK
     Route: 048
  8. EPEREX [Concomitant]
     Indication: Product used for unknown indication
     Dosage: 1 DOSAGE FORM DAY AFTER DAY (TWO OR THREE WEEKS AGO)
     Route: 058
  9. BENFOTIAMINE\CYANOCOBALAMIN\PYRIDOXINE HYDROCHLORIDE [Concomitant]
     Active Substance: BENFOTIAMINE\CYANOCOBALAMIN\PYRIDOXINE HYDROCHLORIDE
     Indication: Unevaluable event
     Dosage: 2 DOSAGE FORM, QD (THE FIRST OF FEBUARY)
     Route: 048
  10. PREDNISOLONE [Concomitant]
     Active Substance: PREDNISOLONE
     Indication: Bone marrow disorder
     Dosage: 1 AND 1/2 TAB PER DAY (TWO OR THREE MONTHS AGO)
     Route: 048

REACTIONS (14)
  - Cough [Not Recovered/Not Resolved]
  - Dyspepsia [Not Recovered/Not Resolved]
  - Abdominal pain upper [Not Recovered/Not Resolved]
  - Platelet count decreased [Recovering/Resolving]
  - Haemoglobin decreased [Recovering/Resolving]
  - Fatigue [Not Recovered/Not Resolved]
  - Gait inability [Not Recovered/Not Resolved]
  - Serum ferritin increased [Recovering/Resolving]
  - Loss of consciousness [Not Recovered/Not Resolved]
  - Product dose omission issue [Not Recovered/Not Resolved]
  - Diarrhoea [Not Recovered/Not Resolved]
  - Decreased appetite [Not Recovered/Not Resolved]
  - Vomiting [Not Recovered/Not Resolved]
  - Asthenia [Not Recovered/Not Resolved]

NARRATIVE: CASE EVENT DATE: 20220104
